FAERS Safety Report 8939326 (Version 1)
Quarter: 2012Q4

REPORT INFORMATION
  Report Type: 
  Country: CA (occurrence: CA)
  Receive Date: 20121203
  Receipt Date: 20121203
  Transmission Date: 20130627
  Serious: Yes (Other)
  Sender: FDA-Public Use
  Company Number: CA-JNJFOC-20121114178

PATIENT
  Sex: Male
  Weight: 72.58 kg

DRUGS (1)
  1. LISTERINE MOUTHWASH COOL CITRUS [Suspect]
     Indication: DENTAL DISORDER PROPHYLAXIS
     Dosage: 1 capful
     Route: 048
     Dates: start: 201211, end: 201211

REACTIONS (1)
  - Asthma [Recovered/Resolved]
